FAERS Safety Report 4680565-5 (Version None)
Quarter: 2005Q2

REPORT INFORMATION
  Report Type: 
  Country: None (occurrence: None)
  Receive Date: 20050531
  Receipt Date: 20050201
  Transmission Date: 20051028
  Serious: No
  Sender: FDA-Public Use
  Company Number: WAES 0502USA00306

PATIENT
  Age: 73 Year
  Sex: Male
  Weight: 109.3169 kg

DRUGS (8)
  1. ZETIA [Suspect]
     Indication: LIPIDS INCREASED
     Dosage: 10 MG/DAILY/PO
     Route: 048
  2. GLIPIZIDE [Concomitant]
  3. IMDUR [Concomitant]
  4. LASIX [Concomitant]
  5. LOPID [Concomitant]
  6. PREVACID [Concomitant]
  7. ZOCOR [Concomitant]
  8. HYDRALAZINE [Concomitant]

REACTIONS (2)
  - BALANCE DISORDER [None]
  - DIZZINESS [None]
